FAERS Safety Report 19463444 (Version 1)
Quarter: 2021Q2

REPORT INFORMATION
  Report Type: Report from Study
  Country: BE (occurrence: BE)
  Receive Date: 20210625
  Receipt Date: 20210625
  Transmission Date: 20210717
  Serious: Yes (Hospitalization)
  Sender: FDA-Public Use
  Company Number: BE-REGENERON PHARMACEUTICALS, INC.-2021-62189

PATIENT

DRUGS (4)
  1. SAR439459 [Suspect]
     Active Substance: SAR-439459
     Indication: HEPATOCELLULAR CARCINOMA
     Dosage: UNK UNK, QOW
     Route: 042
  2. CEMIPLIMAB [Suspect]
     Active Substance: CEMIPLIMAB
     Dosage: 3 MG/KG, QOW
     Route: 042
     Dates: start: 20210325, end: 20210325
  3. SAR439459 [Suspect]
     Active Substance: SAR-439459
     Dosage: UNK UNK, QOW
     Route: 042
     Dates: start: 20210325, end: 20210325
  4. CEMIPLIMAB [Suspect]
     Active Substance: CEMIPLIMAB
     Indication: HEPATOCELLULAR CARCINOMA
     Dosage: 3 MG/KG, QOW
     Route: 042

REACTIONS (1)
  - Hepatic cytolysis [Not Recovered/Not Resolved]

NARRATIVE: CASE EVENT DATE: 20210617
